FAERS Safety Report 8534872-6 (Version None)
Quarter: 2012Q3

REPORT INFORMATION
  Report Type: 
  Country: None (occurrence: None)
  Receive Date: 20120724
  Receipt Date: 20120709
  Transmission Date: 20120928
  Serious: Yes (Other)
  Sender: FDA-Public Use
  Company Number: CHPA2012US015189

PATIENT
  Age: 82 Year
  Sex: Male

DRUGS (1)
  1. MYOFLEX ANALGESIC CREME [Suspect]
     Indication: MYALGIA
     Dosage: UNK, UNK
     Route: 061
     Dates: start: 19490101, end: 20120101

REACTIONS (1)
  - LYMPHOMA [None]
